FAERS Safety Report 6025836-5 (Version None)
Quarter: 2008Q4

REPORT INFORMATION
  Report Type: 
  Country: None (occurrence: None)
  Receive Date: 20081229
  Receipt Date: 20081209
  Transmission Date: 20090506
  Serious: No
  Sender: FDA-Public Use
  Company Number: 8040225

PATIENT

DRUGS (1)
  1. KEPPRA [Suspect]
     Indication: CONVULSION
     Dosage: 250 MG

REACTIONS (1)
  - WRONG TECHNIQUE IN DRUG USAGE PROCESS [None]
